FAERS Safety Report 6022145-5 (Version None)
Quarter: 2008Q4

REPORT INFORMATION
  Report Type: 
  Country: None (occurrence: None)
  Receive Date: 20081229
  Receipt Date: 20081222
  Transmission Date: 20090506
  Serious: Yes (Hospitalization)
  Sender: FDA-Public Use
  Company Number: US-ASTRAZENECA-2008UW28489

PATIENT
  Age: 83 Year
  Sex: Female

DRUGS (2)
  1. SEROQUEL [Suspect]
     Route: 048
     Dates: start: 20080501
  2. NSAID [Concomitant]

REACTIONS (7)
  - BLOOD TEST ABNORMAL [None]
  - COMMUNICATION DISORDER [None]
  - HYPERGLYCAEMIA [None]
  - ILL-DEFINED DISORDER [None]
  - LIVER FUNCTION TEST ABNORMAL [None]
  - PALLOR [None]
  - PYREXIA [None]
